FAERS Safety Report 9444995 (Version 1)
Quarter: 2013Q3

REPORT INFORMATION
  Report Type: Spontaneous
  Country: IT (occurrence: IT)
  Receive Date: 20130807
  Receipt Date: 20130807
  Transmission Date: 20140515
  Serious: Yes (Other)
  Sender: FDA-Public Use
  Company Number: IT-ROCHE-1258229

PATIENT
  Age: 64 Year
  Sex: Female
  Weight: 54 kg

DRUGS (3)
  1. TOCILIZUMAB [Suspect]
     Indication: TEMPORAL ARTERITIS
     Route: 042
     Dates: start: 20130125, end: 20130125
  2. TOCILIZUMAB [Suspect]
     Indication: OFF LABEL USE
  3. METILPREDNISOLONE [Concomitant]
     Route: 065
     Dates: start: 20121201, end: 20130723

REACTIONS (4)
  - Choking sensation [Recovered/Resolved]
  - Erythema [Recovered/Resolved]
  - Hyperaemia [Recovered/Resolved]
  - Hyperthermia [Recovered/Resolved]
